FAERS Safety Report 10623140 (Version 2)
Quarter: 2016Q2

REPORT INFORMATION
  Report Type: Spontaneous
  Country: US (occurrence: US)
  Receive Date: 20141203
  Receipt Date: 20160609
  Transmission Date: 20160815
  Serious: No
  Sender: FDA-Public Use
  Company Number: US-JNJFOC-20141109684

PATIENT
  Sex: Male

DRUGS (5)
  1. RISPERDAL [Suspect]
     Active Substance: RISPERIDONE
     Indication: CONDUCT DISORDER
     Route: 048
  2. RISPERDAL [Suspect]
     Active Substance: RISPERIDONE
     Indication: ATTENTION DEFICIT/HYPERACTIVITY DISORDER
     Dosage: 0.50-1.00 MG
     Route: 048
     Dates: start: 2008, end: 2016
  3. RISPERDAL [Suspect]
     Active Substance: RISPERIDONE
     Indication: ATTENTION DEFICIT/HYPERACTIVITY DISORDER
     Route: 048
  4. RISPERDAL [Suspect]
     Active Substance: RISPERIDONE
     Indication: CONDUCT DISORDER
     Dosage: 0.50-1.00 MG
     Route: 048
     Dates: start: 2008, end: 2016
  5. RISPERIDONE. [Suspect]
     Active Substance: RISPERIDONE
     Indication: PRODUCT USED FOR UNKNOWN INDICATION
     Route: 048

REACTIONS (6)
  - Product use issue [Unknown]
  - Off label use [Unknown]
  - Gynaecomastia [Unknown]
  - Hyperprolactinaemia [Unknown]
  - Galactorrhoea [Unknown]
  - Abnormal weight gain [Unknown]

NARRATIVE: CASE EVENT DATE: 2008
